FAERS Safety Report 5141938-X (Version None)
Quarter: 2006Q4

REPORT INFORMATION
  Report Type: 
  Country: None (occurrence: None)
  Receive Date: 20061102
  Receipt Date: 20061017
  Transmission Date: 20070319
  Serious: Yes (Hospitalization)
  Sender: FDA-Public Use
  Company Number: PHRM2006FR02860

PATIENT
  Age: 78 Year
  Sex: Male

DRUGS (6)
  1. TRILEPTAL [Suspect]
     Dosage: 600 MG/DAY
     Route: 048
     Dates: start: 20051019
  2. ALDACTONE [Suspect]
     Dosage: 25 MG/DAY
     Route: 048
     Dates: start: 20051019
  3. LASIX [Suspect]
     Dosage: 40 MG/DAY
     Route: 048
     Dates: start: 20051019, end: 20060208
  4. PREVISCAN [Suspect]
     Dosage: 20 MG/DAY
     Route: 048
     Dates: start: 20051019
  5. TARDYFERON [Suspect]
     Dosage: 160 MG/DAY
     Route: 048
     Dates: start: 20050212
  6. URBANYL [Suspect]
     Dosage: 10 MG/DAY
     Route: 048
     Dates: start: 20051019

REACTIONS (9)
  - BLOOD BICARBONATE ABNORMAL [None]
  - BLOOD PH DECREASED [None]
  - CONDITION AGGRAVATED [None]
  - DEPRESSED LEVEL OF CONSCIOUSNESS [None]
  - DYSPNOEA [None]
  - RESPIRATORY ACIDOSIS [None]
  - RESPIRATORY DISTRESS [None]
  - RESPIRATORY FAILURE [None]
  - RIGHT VENTRICULAR FAILURE [None]
